FAERS Safety Report 10908638 (Version 1)
Quarter: 2015Q1

REPORT INFORMATION
  Report Type: Spontaneous
  Country: US (occurrence: None)
  Receive Date: 20150128
  Receipt Date: 20150128
  Transmission Date: 20150721
  Serious: No
  Sender: FDA-Public Use
  Company Number: 2014TUS011029

PATIENT
  Age: 76 Year
  Sex: Female
  Weight: 72.6 kg

DRUGS (2)
  1. ENABLEX /01760401/ (DARIFENACIN) [Concomitant]
  2. BRINTELLIX [Suspect]
     Active Substance: VORTIOXETINE HYDROBROMIDE
     Indication: MAJOR DEPRESSION
     Route: 048
     Dates: start: 20140903

REACTIONS (2)
  - Tooth abscess [None]
  - Abscess intestinal [None]

NARRATIVE: CASE EVENT DATE: 20141015
